FAERS Safety Report 14305197 (Version 1)
Quarter: 2017Q4

REPORT INFORMATION
  Report Type: Spontaneous
  Country: JP (occurrence: JP)
  Receive Date: 20171219
  Receipt Date: 20171219
  Transmission Date: 20180321
  Serious: Yes (Life-Threatening, Other)
  Sender: FDA-Public Use
  Company Number: JP-OTSUKA-JP-2013-11001

PATIENT
  Age: 46 Year
  Sex: Male
  Weight: 68 kg

DRUGS (6)
  1. VITAMEDIN [Concomitant]
     Active Substance: CYANOCOBALAMIN\PYRIDOXINE HYDROCHLORIDE\THIAMINE
     Indication: VITAMIN B COMPLEX DEFICIENCY
     Dosage: 25 MG, TID
     Route: 048
     Dates: start: 20120212, end: 20130430
  2. ABILIFY [Suspect]
     Active Substance: ARIPIPRAZOLE
     Indication: OFF LABEL USE
  3. HORIZON [Concomitant]
     Active Substance: DIAZEPAM
     Indication: ALCOHOL WITHDRAWAL SYNDROME
     Dosage: 5 MG, TID
     Route: 048
     Dates: start: 20130212, end: 20130409
  4. BESTON [Concomitant]
     Indication: VITAMIN B COMPLEX DEFICIENCY
     Dosage: 25 MG, TID
     Route: 048
     Dates: start: 20130212, end: 20130430
  5. ABILIFY [Suspect]
     Active Substance: ARIPIPRAZOLE
     Indication: EMOTIONAL DISORDER
     Dosage: 6 MG, QD
     Route: 048
     Dates: start: 20130228, end: 20130327
  6. NOCBIN [Suspect]
     Active Substance: DISULFIRAM
     Indication: ABSTAINS FROM ALCOHOL
     Dosage: 0.2 G, QD
     Route: 048
     Dates: start: 20130212, end: 20130329

REACTIONS (4)
  - Hepatic function abnormal [Recovering/Resolving]
  - Off label use [Unknown]
  - Jaundice cholestatic [Unknown]
  - Somnolence [Unknown]

NARRATIVE: CASE EVENT DATE: 20130228
